FAERS Safety Report 14529551 (Version 1)
Quarter: 2018Q1

REPORT INFORMATION
  Report Type: Spontaneous
  Country: US (occurrence: US)
  Receive Date: 20180213
  Receipt Date: 20180213
  Transmission Date: 20180509
  Serious: Yes (Other)
  Sender: FDA-Public Use
  Company Number: None

PATIENT
  Age: 29 Year
  Sex: Female
  Weight: 72.57 kg

DRUGS (19)
  1. TOPAMAX [Concomitant]
     Active Substance: TOPIRAMATE
  2. CLARTIN [Concomitant]
  3. PERMETHRIN 5% PERRIGO [Suspect]
     Active Substance: PERMETHRIN
     Indication: ACARODERMATITIS
     Dosage: 1 TUBE EACH TREATMENT. 60G. 1 APPLICATION 8-12HRS + THEN RETREAT IN A WEEK. ON THE SKIN
     Route: 061
     Dates: start: 20171013, end: 20171205
  4. DEPO-PROVERA [Concomitant]
     Active Substance: MEDROXYPROGESTERONE ACETATE
  5. TRIAMCINOLON [Concomitant]
  6. ADDERALL [Concomitant]
     Active Substance: AMPHETAMINE ASPARTATE\AMPHETAMINE SULFATE\DEXTROAMPHETAMINE SACCHARATE\DEXTROAMPHETAMINE SULFATE
  7. FLO-VENT [Concomitant]
  8. VITAMELTS (VITAMIN C + BIOTIN) [Concomitant]
  9. GABAPENTIN. [Concomitant]
     Active Substance: GABAPENTIN
  10. LITHIUM. [Concomitant]
     Active Substance: LITHIUM
  11. FLO-NASE [Concomitant]
  12. COLACE [Concomitant]
     Active Substance: DOCUSATE SODIUM
  13. MAXALT [Concomitant]
     Active Substance: RIZATRIPTAN BENZOATE
  14. PENLAC [Concomitant]
     Active Substance: CICLOPIROX
  15. REMERON [Concomitant]
     Active Substance: MIRTAZAPINE
  16. ALBUTEROL. [Concomitant]
     Active Substance: ALBUTEROL
  17. ZOFRAN [Concomitant]
     Active Substance: ONDANSETRON HYDROCHLORIDE
  18. ELIMITE [Suspect]
     Active Substance: PERMETHRIN
     Indication: ACARODERMATITIS
     Dosage: 1 TUBE EACH TREATMENT. 60G. 1 APPLICATION 8-12HRS + THEN RETREAT IN A WEEK. ON THE SKIN
     Route: 061
     Dates: start: 20171013, end: 20171205
  19. MUPIROCIN. [Concomitant]
     Active Substance: MUPIROCIN

REACTIONS (1)
  - Neurodermatitis [None]

NARRATIVE: CASE EVENT DATE: 20171014
